FAERS Safety Report 11356504 (Version 4)
Quarter: 2016Q2

REPORT INFORMATION
  Report Type: Spontaneous
  Country: JP (occurrence: JP)
  Receive Date: 20150807
  Receipt Date: 20160405
  Transmission Date: 20160815
  Serious: Yes (Life-Threatening, Hospitalization, Other)
  Sender: FDA-Public Use
  Company Number: JP-BAYER-2015-394798

PATIENT
  Age: 10 Month
  Sex: Female

DRUGS (1)
  1. BAYASPIRIN [Suspect]
     Active Substance: ASPIRIN
     Indication: THROMBOSIS PROPHYLAXIS
     Dosage: 5 MG/KG, QD
     Route: 048

REACTIONS (7)
  - Abdominal pain [Recovered/Resolved]
  - Alagille syndrome [Recovered/Resolved]
  - Haematochezia [Recovered/Resolved]
  - Small intestinal ulcer haemorrhage [Recovered/Resolved]
  - Shock haemorrhagic [Recovered/Resolved]
  - Melaena [Recovered/Resolved]
  - Hyperthermia [Recovered/Resolved]
